FAERS Safety Report 4790900-5 (Version None)
Quarter: 2005Q3

REPORT INFORMATION
  Report Type: 
  Country: None (occurrence: None)
  Receive Date: 20050914
  Receipt Date: 20041211
  Transmission Date: 20060218
  Serious: Yes (Death, Disabling)
  Sender: FDA-Public Use
  Company Number: 163-20785-04120344

PATIENT
  Age: 75 Year
  Sex: Female
  Weight: 45.3597 kg

DRUGS (12)
  1. THALOMID [Suspect]
     Indication: MULTIPLE MYELOMA
     Dosage: 50 MG, QHS, ORAL
     Route: 048
     Dates: start: 20041201, end: 20041201
  2. DURAGESIC-100 [Concomitant]
  3. DEXAMETHASONE [Concomitant]
  4. LEXAPRO [Concomitant]
  5. SYNTHROID [Concomitant]
  6. NORVASC [Concomitant]
  7. PROTONIX [Concomitant]
  8. WARFARIN [Concomitant]
  9. TOPROL (METOPROLOL SUCCINATE) [Concomitant]
  10. ASPIRIN [Concomitant]
  11. OXYCODONE HCL [Concomitant]
  12. TYLOX [Concomitant]

REACTIONS (12)
  - ASTHENIA [None]
  - DEATH [None]
  - DISEASE PROGRESSION [None]
  - DYSPNOEA [None]
  - FATIGUE [None]
  - GAIT DISTURBANCE [None]
  - HYPOAESTHESIA [None]
  - MUSCULAR WEAKNESS [None]
  - OEDEMA PERIPHERAL [None]
  - PAIN [None]
  - PARAESTHESIA [None]
  - SPINAL CORD COMPRESSION [None]
